FAERS Safety Report 22079066 (Version 1)
Quarter: 2023Q1

REPORT INFORMATION
  Report Type: Spontaneous
  Country: US (occurrence: None)
  Receive Date: 20230309
  Receipt Date: 20230309
  Transmission Date: 20230417
  Serious: No
  Sender: FDA-Public Use
  Company Number: None

PATIENT
  Age: 38 Year
  Sex: Female
  Weight: 81 kg

DRUGS (4)
  1. EMGALITY [Suspect]
     Active Substance: GALCANEZUMAB-GNLM
     Indication: Migraine prophylaxis
     Dosage: 1 INJECTION  LOADING DOSE 2X  INTRAMUSCULAR
     Route: 030
     Dates: start: 20230308, end: 20230309
  2. UBRELVY [Concomitant]
     Active Substance: UBROGEPANT
  3. MAGNESIUM [Concomitant]
     Active Substance: MAGNESIUM
  4. ZYRTEC [Concomitant]
     Active Substance: CETIRIZINE HYDROCHLORIDE

REACTIONS (1)
  - Injection site hypersensitivity [None]

NARRATIVE: CASE EVENT DATE: 20230308
